FAERS Safety Report 17485951 (Version 1)
Quarter: 2020Q1

REPORT INFORMATION
  Report Type: Spontaneous
  Country: JP (occurrence: JP)
  Receive Date: 20200303
  Receipt Date: 20200303
  Transmission Date: 20200409
  Serious: Yes (Death, Other)
  Sender: FDA-Public Use
  Company Number: JP-ROCHE-2535853

PATIENT
  Age: 67 Year
  Sex: Male
  Weight: 47 kg

DRUGS (5)
  1. LEVOFOLINATE CALCIUM [Concomitant]
     Active Substance: LEVOLEUCOVORIN CALCIUM
     Indication: COLON CANCER
     Dosage: DOSAGE IS UNCERTAIN.
     Route: 041
     Dates: start: 20191105, end: 20191217
  2. AVASTIN [Suspect]
     Active Substance: BEVACIZUMAB
     Indication: COLON CANCER
     Route: 041
     Dates: start: 2019, end: 20191217
  3. IRINOTECAN HYDROCHLORIDE. [Concomitant]
     Active Substance: IRINOTECAN HYDROCHLORIDE
     Indication: COLON CANCER
     Dosage: DOSAGE IS UNCERTAIN.
     Route: 041
     Dates: start: 20191105, end: 20191217
  4. FLUOROURACIL. [Concomitant]
     Active Substance: FLUOROURACIL
     Indication: COLON CANCER
     Dosage: DOSAGE IS UNCERTAIN.
     Route: 040
     Dates: start: 20191105, end: 20191217
  5. FLUOROURACIL. [Concomitant]
     Active Substance: FLUOROURACIL
     Dosage: DOSAGE IS UNCERTAIN.
     Route: 041
     Dates: start: 20191105, end: 20191217

REACTIONS (3)
  - Intestinal obstruction [Unknown]
  - Gastrointestinal perforation [Fatal]
  - Colon cancer [Fatal]

NARRATIVE: CASE EVENT DATE: 20191227
